FAERS Safety Report 5022627-9 (Version None)
Quarter: 2006Q2

REPORT INFORMATION
  Report Type: 
  Country: None (occurrence: None)
  Receive Date: 20060605
  Receipt Date: 20060516
  Transmission Date: 20061013
  Serious: Yes (Other)
  Sender: FDA-Public Use
  Company Number: FR200605002146

PATIENT
  Sex: Male

DRUGS (1)
  1. CIALIS [Suspect]
     Dosage: ORAL
     Route: 048

REACTIONS (2)
  - RETINAL HAEMORRHAGE [None]
  - VITREOUS FLOATERS [None]
